FAERS Safety Report 5584356-2 (Version None)
Quarter: 2008Q1

REPORT INFORMATION
  Report Type: 
  Country: None (occurrence: None)
  Receive Date: 20080108
  Receipt Date: 20080103
  Transmission Date: 20080703
  Serious: Yes (Death, Hospitalization, Other)
  Sender: FDA-Public Use
  Company Number: FR-JNJFOC-20071007215

PATIENT
  Age: 58 Year
  Sex: Female
  Weight: 76 kg

DRUGS (6)
  1. CAELYX [Suspect]
     Indication: BREAST CANCER METASTATIC
     Route: 042
  2. XELODA [Interacting]
     Route: 065
  3. XELODA [Interacting]
     Indication: BREAST CANCER METASTATIC
     Route: 065
  4. INEXIUM [Concomitant]
     Route: 048
  5. KENZEN [Concomitant]
     Dosage: SINCE BEFORE 2005
     Route: 048
  6. SOLUPRED [Concomitant]
     Route: 048

REACTIONS (6)
  - BREAST CANCER [None]
  - CYANOSIS [None]
  - DRUG INTERACTION [None]
  - GENERAL PHYSICAL HEALTH DETERIORATION [None]
  - INJECTION SITE ERYTHEMA [None]
  - PALMAR-PLANTAR ERYTHRODYSAESTHESIA SYNDROME [None]
